FAERS Safety Report 5957501-4 (Version None)
Quarter: 2008Q4

REPORT INFORMATION
  Report Type: 
  Country: None (occurrence: None)
  Receive Date: 20081113
  Receipt Date: 20081001
  Transmission Date: 20090506
  Serious: Yes (Hospitalization)
  Sender: FDA-Public Use
  Company Number: CHPA2008US17636

PATIENT
  Age: 19 Year
  Sex: Male

DRUGS (4)
  1. THERAFLU FLU AND CHEST CONGESTION WITHOUT PSE (NCH)(GUAIFENESIN, PARAC [Suspect]
     Indication: INFLUENZA
     Dates: start: 20080930, end: 20080930
  2. THERAFLU FLU AND CHEST CONGESTION WITHOUT PSE (NCH)(GUAIFENESIN, PARAC [Suspect]
     Indication: UPPER RESPIRATORY TRACT CONGESTION
     Dates: start: 20080930, end: 20080930
  3. TYLENOL EXTENDED RELIEF (PARACETAMOL) [Suspect]
     Dosage: ORAL
     Route: 048
     Dates: start: 20080930, end: 20080930
  4. ROBITUSSIN ^WYETH^ (GUAIFENESIN) [Suspect]

REACTIONS (3)
  - DRUG ADMINISTRATION ERROR [None]
  - HEADACHE [None]
  - PNEUMONIA [None]
